FAERS Safety Report 16404834 (Version 1)
Quarter: 2019Q2

REPORT INFORMATION
  Report Type: Report from Study
  Country: US (occurrence: US)
  Receive Date: 20190607
  Receipt Date: 20190607
  Transmission Date: 20190711
  Serious: Yes (Hospitalization, Other)
  Sender: FDA-Public Use
  Company Number: US-MALLINCKRODT-T201902895

PATIENT
  Age: 87 Year
  Sex: Male
  Weight: 88 kg

DRUGS (5)
  1. REPOSITORY CORTICOTROPIN INJECTION [Suspect]
     Active Substance: CORTICOTROPIN
     Indication: GLOMERULONEPHRITIS MEMBRANOUS
     Dosage: 40 UNITS ONCE WEEKLY
     Route: 058
     Dates: start: 20190308, end: 201903
  2. REPOSITORY CORTICOTROPIN INJECTION [Suspect]
     Active Substance: CORTICOTROPIN
     Dosage: 40 UNITS FOR A COUPLE OF WEEKS
     Route: 065
     Dates: start: 2019, end: 20190527
  3. REPOSITORY CORTICOTROPIN INJECTION [Suspect]
     Active Substance: CORTICOTROPIN
     Indication: PROTEINURIA
     Dosage: 20 UNITS TWICE A WEEK  FOR 3 WEEKS
     Route: 065
     Dates: start: 20190309, end: 201903
  4. REPOSITORY CORTICOTROPIN INJECTION [Suspect]
     Active Substance: CORTICOTROPIN
     Indication: NEPHROTIC SYNDROME
     Dosage: 40 UNITS TWICE A WEEK FOR A FEW WEEKS
     Route: 065
     Dates: start: 201903, end: 201903
  5. REPOSITORY CORTICOTROPIN INJECTION [Suspect]
     Active Substance: CORTICOTROPIN
     Indication: NEPHRITIS
     Dosage: 80 UNITS, TWICE WEEKLY FOR A COUPLE OF WEEKS
     Route: 065
     Dates: start: 201903, end: 2019

REACTIONS (10)
  - Impaired quality of life [Unknown]
  - Diabetes mellitus [Recovering/Resolving]
  - Generalised oedema [Not Recovered/Not Resolved]
  - Blood pressure increased [Unknown]
  - Atrial fibrillation [Not Recovered/Not Resolved]
  - Weight increased [Recovering/Resolving]
  - Asthenia [Unknown]
  - Drug ineffective [Unknown]
  - Fluid retention [Recovering/Resolving]
  - Dyspnoea [Unknown]

NARRATIVE: CASE EVENT DATE: 2019
